FAERS Safety Report 7141116-9 (Version None)
Quarter: 2010Q4

REPORT INFORMATION
  Report Type: 
  Country: None (occurrence: None)
  Receive Date: 20101207
  Receipt Date: 20101122
  Transmission Date: 20110411
  Serious: Yes (Death, Life-Threatening, Hospitalization, Other)
  Sender: FDA-Public Use
  Company Number: GB-RANBAXY-2010RR-33093

PATIENT
  Age: 70 Year
  Sex: Male

DRUGS (9)
  1. SIMVASTATIN [Suspect]
     Indication: HYPERCHOLESTEROLAEMIA
     Dosage: 40 MG, UNK
     Route: 048
  2. ERYTHROMYCIN [Suspect]
     Indication: PSOAS ABSCESS
     Dosage: 250 MG, QID
     Route: 048
  3. ERYTHROMYCIN [Suspect]
     Indication: LOWER RESPIRATORY TRACT INFECTION
  4. FLUCLOXACILLIN [Concomitant]
     Indication: PSOAS ABSCESS
     Dosage: 500 MG, QID
     Route: 048
  5. FLUCLOXACILLIN [Concomitant]
     Dosage: 500 MG, QID
     Route: 048
  6. FLUCLOXACILLIN [Concomitant]
     Dosage: UNK
     Route: 042
  7. METRONIDAZOLE [Concomitant]
     Indication: PSOAS ABSCESS
     Dosage: UNK
     Route: 042
  8. CEFUROXIME [Concomitant]
     Indication: PSOAS ABSCESS
     Dosage: UNK
     Route: 042
  9. CLARITHROMYCIN [Concomitant]
     Dosage: 500 MG, BID
     Dates: start: 20081208, end: 20081209

REACTIONS (18)
  - ALANINE AMINOTRANSFERASE INCREASED [None]
  - ANURIA [None]
  - ASTHENIA [None]
  - BLOOD CREATINE PHOSPHOKINASE INCREASED [None]
  - BLOOD URINE PRESENT [None]
  - COGNITIVE DISORDER [None]
  - DISEASE PROGRESSION [None]
  - DRUG INTERACTION [None]
  - DYSPNOEA [None]
  - HYPOREFLEXIA [None]
  - MOVEMENT DISORDER [None]
  - MUSCULAR WEAKNESS [None]
  - MYALGIA [None]
  - MYOGLOBINURIA [None]
  - MYOSITIS [None]
  - NECROSIS [None]
  - RHABDOMYOLYSIS [None]
  - SEPSIS [None]
